FAERS Safety Report 7123634-2 (Version None)
Quarter: 2010Q4

REPORT INFORMATION
  Report Type: 
  Country: None (occurrence: None)
  Receive Date: 20101125
  Receipt Date: 20101116
  Transmission Date: 20110411
  Serious: Yes (Other)
  Sender: FDA-Public Use
  Company Number: US-SANOFI-AVENTIS-2010SA070393

PATIENT
  Age: 71 Year
  Sex: Female
  Weight: 99 kg

DRUGS (4)
  1. MULTAQ [Suspect]
     Indication: ATRIAL FIBRILLATION
     Route: 048
     Dates: start: 20101114
  2. TOPROL-XL [Concomitant]
     Indication: PROPHYLAXIS
  3. OMEPRAZOLE [Concomitant]
  4. COUMADIN [Concomitant]
     Indication: ATRIAL FIBRILLATION
     Dates: start: 20100801

REACTIONS (3)
  - ATRIAL FIBRILLATION [None]
  - DIZZINESS [None]
  - VERTIGO [None]
